FAERS Safety Report 6357871-1 (Version None)
Quarter: 2009Q3

REPORT INFORMATION
  Report Type: 
  Country: None (occurrence: None)
  Receive Date: 20090911
  Receipt Date: 20090828
  Transmission Date: 20100115
  Serious: Yes (Death)
  Sender: FDA-Public Use
  Company Number: SPV1-2009-01591

PATIENT
  Sex: Male

DRUGS (1)
  1. ELAPRASE [Suspect]
     Indication: MUCOPOLYSACCHARIDOSIS II
     Dosage: 30 MG, 1X/WEEK, IV DRIP
     Route: 041
     Dates: start: 20070718

REACTIONS (1)
  - RESPIRATORY FAILURE [None]
